FAERS Safety Report 6878364-9 (Version None)
Quarter: 2010Q3

REPORT INFORMATION
  Report Type: 
  Country: None (occurrence: None)
  Receive Date: 20100728
  Receipt Date: 20100721
  Transmission Date: 20110219
  Serious: Yes (Hospitalization)
  Sender: FDA-Public Use
  Company Number: JP-EISAI INC.-E3810-03961-SPO-JP

PATIENT
  Age: 41 Year
  Sex: Female

DRUGS (5)
  1. PARIET (RABEPRAZOLE) [Suspect]
     Indication: GASTRIC ULCER
     Route: 048
     Dates: start: 20100628, end: 20100705
  2. PARIET (RABEPRAZOLE) [Suspect]
     Route: 048
     Dates: start: 20100721
  3. PARIET (RABEPRAZOLE) [Suspect]
     Indication: ABDOMINAL PAIN
     Dosage: UNKNOWN
     Route: 048
     Dates: start: 20100708, end: 20100720
  4. ULCERLMIN [Concomitant]
     Route: 048
     Dates: end: 20100705
  5. INDOMETHACIN SODIUM [Concomitant]
     Dates: end: 20100705

REACTIONS (1)
  - OVARIAN HAEMORRHAGE [None]
